FAERS Safety Report 19477120 (Version 1)
Quarter: 2021Q2

REPORT INFORMATION
  Report Type: Spontaneous
  Country: US (occurrence: US)
  Receive Date: 20210629
  Receipt Date: 20210629
  Transmission Date: 20210717
  Serious: Yes (Other)
  Sender: FDA-Public Use
  Company Number: None

PATIENT
  Age: 68 Year
  Sex: Male
  Weight: 69.75 kg

DRUGS (1)
  1. ARMODAFINIL. [Suspect]
     Active Substance: ARMODAFINIL
     Indication: HYPERSOMNIA
     Dosage: ?          OTHER FREQUENCY:4 TABS QAM;?
     Route: 048
     Dates: start: 20100101

REACTIONS (7)
  - Product substitution issue [None]
  - Drug ineffective [None]
  - Therapeutic product effect decreased [None]
  - Anaemia [None]
  - Manufacturing materials issue [None]
  - Depressed level of consciousness [None]
  - Product measured potency issue [None]

NARRATIVE: CASE EVENT DATE: 20210601
